FAERS Safety Report 7833330-1 (Version None)
Quarter: 2011Q4

REPORT INFORMATION
  Report Type: 
  Country: None (occurrence: None)
  Receive Date: 20111024
  Receipt Date: 20111014
  Transmission Date: 20120403
  Serious: Yes (Other)
  Sender: FDA-Public Use
  Company Number: BR-US-EMD SERONO, INC.-7087854

PATIENT
  Sex: Female

DRUGS (11)
  1. NAPRIX [Concomitant]
  2. REBIF [Suspect]
     Indication: RELAPSING-REMITTING MULTIPLE SCLEROSIS
     Dates: start: 20100501
  3. CLONAZEPAM [Concomitant]
  4. ANABOLIC-ANDROGEN STEROIDS [Concomitant]
  5. AMLODIPINE [Concomitant]
  6. HYDROCHLOROTHIAZIDE [Concomitant]
  7. ATENOLOL [Concomitant]
  8. METFORMIN HCL [Concomitant]
  9. CLORANA [Concomitant]
  10. SINVASTATINE [Concomitant]
  11. GLYBURIDE [Concomitant]

REACTIONS (5)
  - NAUSEA [None]
  - INJECTION SITE ERYTHEMA [None]
  - VOMITING [None]
  - UTERINE LEIOMYOMA [None]
  - ABDOMINAL PAIN UPPER [None]
